FAERS Safety Report 24652033 (Version 1)
Quarter: 2024Q4

REPORT INFORMATION
  Report Type: Spontaneous
  Country: US (occurrence: None)
  Receive Date: 20241121
  Receipt Date: 20241121
  Transmission Date: 20250114
  Serious: No
  Sender: Public
  Company Number: None

PATIENT
  Sex: Female
  Weight: 58.06 kg

DRUGS (10)
  1. AZITHROMYCIN [Suspect]
     Active Substance: AZITHROMYCIN
     Indication: Upper respiratory tract infection
     Dosage: FREQUENCY : DAILY;?
     Route: 048
     Dates: start: 20240111, end: 20241103
  2. Cetirzine Hydrochloride [Concomitant]
  3. TYLENOL [Concomitant]
  4. Women^s Multivitamin [Concomitant]
  5. Salonpas Pain Relieving Patch [Concomitant]
  6. D3 2000 IU [Concomitant]
  7. GINKGO BILOBA [Concomitant]
  8. Milk Thristle [Concomitant]
  9. Luteint Zeaxanthin [Concomitant]
  10. Systane Eye drop [Concomitant]

REACTIONS (1)
  - Auditory disorder [None]
